FAERS Safety Report 4872147-7 (Version None)
Quarter: 2005Q4

REPORT INFORMATION
  Report Type: 
  Country: None (occurrence: None)
  Receive Date: 20051230
  Receipt Date: 20051220
  Transmission Date: 20060501
  Serious: Yes (Hospitalization)
  Sender: FDA-Public Use
  Company Number: 05-NIP00141

PATIENT
  Age: 49 Year
  Sex: Male
  Weight: 64 kg

DRUGS (7)
  1. NIPENT [Suspect]
     Indication: CHRONIC LYMPHOCYTIC LEUKAEMIA
     Dosage: 0.1905 MG/M2 (4 MG/M2, Q 3 WEEKS), INTRAVENOUS
     Route: 042
     Dates: start: 20051101, end: 20051101
  2. CYCLOPHOSPHAMIDE [Suspect]
     Indication: CHRONIC LYMPHOCYTIC LEUKAEMIA
     Dosage: 28.5714 MG/M2 (600 MG/M2, Q 3 WEEKS) INTRAVENOUS
     Route: 042
     Dates: start: 20051101, end: 20051101
  3. ACYCLOVIR [Concomitant]
  4. ALLOPURINOL [Concomitant]
  5. ZOFRAN [Concomitant]
  6. SEVELAMER HYDROCHLORIDE(SEVELAMER HYDROCHLORIDE) [Concomitant]
  7. SULFAMETHOXAZOLE/TRIMETHOPRIN (TABLETS) [Concomitant]

REACTIONS (3)
  - FEBRILE NEUTROPENIA [None]
  - PAIN IN EXTREMITY [None]
  - PNEUMONIA FUNGAL [None]
